FAERS Safety Report 24762581 (Version 1)
Quarter: 2024Q4

REPORT INFORMATION
  Report Type: Spontaneous
  Country: GB (occurrence: GB)
  Receive Date: 20241221
  Receipt Date: 20241221
  Transmission Date: 20250114
  Serious: Yes (Hospitalization)
  Sender: ABBVIE
  Company Number: GB-ABBVIE-6053476

PATIENT

DRUGS (1)
  1. ATOGEPANT [Suspect]
     Active Substance: ATOGEPANT
     Indication: Migraine
     Route: 048
     Dates: start: 20241107

REACTIONS (4)
  - Hypertensive urgency [Recovering/Resolving]
  - Vision blurred [Recovering/Resolving]
  - Eye pain [Recovering/Resolving]
  - Retinal injury [Recovering/Resolving]

NARRATIVE: CASE EVENT DATE: 20241101
